FAERS Safety Report 13528103 (Version 1)
Quarter: 2017Q2

REPORT INFORMATION
  Report Type: Spontaneous
  Country: UA (occurrence: UA)
  Receive Date: 20170509
  Receipt Date: 20170509
  Transmission Date: 20170830
  Serious: Yes (Other)
  Sender: FDA-Public Use
  Company Number: UA-JNJFOC-20170502693

PATIENT

DRUGS (2)
  1. DOXORUBICIN HYDROCHLORIDE. [Suspect]
     Active Substance: DOXORUBICIN HYDROCHLORIDE
     Indication: ACUTE MYELOID LEUKAEMIA
     Dosage: CUMULATIVE DOSES-100 TO 200 MG/M2; 179.5+/-24.11 MG/M2 AND 172.1+/-23.15 MG/M2 IN GROUPS I AND II
     Route: 065
  2. DOXORUBICIN HYDROCHLORIDE. [Suspect]
     Active Substance: DOXORUBICIN HYDROCHLORIDE
     Indication: ACUTE LYMPHOCYTIC LEUKAEMIA
     Dosage: CUMULATIVE DOSES-100 TO 200 MG/M2; 179.5+/-24.11 MG/M2 AND 172.1+/-23.15 MG/M2 IN GROUPS I AND II
     Route: 065

REACTIONS (13)
  - Sinus tachycardia [Unknown]
  - Product use in unapproved indication [Unknown]
  - Electrocardiogram ST segment depression [Unknown]
  - Ventricular extrasystoles [Unknown]
  - Off label use [Unknown]
  - Atrioventricular block [Unknown]
  - Bundle branch block right [Unknown]
  - Bundle branch block left [Unknown]
  - Electrocardiogram QRS complex abnormal [Unknown]
  - Supraventricular extrasystoles [Unknown]
  - Electrocardiogram T wave abnormal [Unknown]
  - Electrocardiogram repolarisation abnormality [Unknown]
  - Electrocardiogram QT prolonged [Unknown]
